FAERS Safety Report 8932502 (Version 1)
Quarter: 2012Q4

REPORT INFORMATION
  Report Type: Spontaneous
  Country: IT (occurrence: None)
  Receive Date: 20121120
  Receipt Date: 20121120
  Transmission Date: 20130627
  Serious: Yes (Death, Hospitalization)
  Sender: FDA-Public Use
  Company Number: FK201203369

PATIENT
  Age: 57 Year
  Sex: Female

DRUGS (3)
  1. ETOPOSIDE [Suspect]
     Indication: ACUTE MYELOID LEUKAEMIA
  2. CYTARABINE [Suspect]
     Indication: ACUTE MYELOID LEUKAEMIA
  3. DAUNORUBICIN [Suspect]
     Indication: ACUTE MYELOID LEUKAEMIA

REACTIONS (13)
  - Posterior reversible encephalopathy syndrome [None]
  - Blood pressure increased [None]
  - Fluid overload [None]
  - Pancytopenia [None]
  - Septic shock [None]
  - Escherichia sepsis [None]
  - Multi-organ failure [None]
  - Systemic inflammatory response syndrome [None]
  - Confusional state [None]
  - Visual impairment [None]
  - Hemianopia [None]
  - Aphasia [None]
  - Cerebral ischaemia [None]
